FAERS Safety Report 18253962 (Version 1)
Quarter: 2020Q3

REPORT INFORMATION
  Report Type: Spontaneous
  Country: JP (occurrence: JP)
  Receive Date: 20200910
  Receipt Date: 20200910
  Transmission Date: 20201103
  Serious: Yes (Hospitalization, Other)
  Sender: FDA-Public Use
  Company Number: JP-MICRO LABS LIMITED-ML2020-02653

PATIENT
  Age: 74 Year
  Sex: Female

DRUGS (9)
  1. LACOSAMIDE. [Suspect]
     Active Substance: LACOSAMIDE
  2. LACOSAMIDE. [Suspect]
     Active Substance: LACOSAMIDE
     Dosage: DURING OUTPATIENT VISIT, DOSE INCREASED
  3. LEVETIRACETAM. [Suspect]
     Active Substance: LEVETIRACETAM
     Dosage: DOSE WAS DECREASED DURING ADMISSION
  4. LEVETIRACETAM. [Suspect]
     Active Substance: LEVETIRACETAM
     Dosage: AT DISCHARGE,DOSE INCREASED BACK TO 2000 MG/DAY
  5. PERAMIVIR HYDRATE [Concomitant]
  6. CARBAMAZEPINE. [Concomitant]
     Active Substance: CARBAMAZEPINE
     Indication: SEIZURE
  7. LEVETIRACETAM. [Suspect]
     Active Substance: LEVETIRACETAM
     Indication: SEIZURE
  8. PERAMPANEL [Suspect]
     Active Substance: PERAMPANEL
     Indication: SEIZURE
  9. LACOSAMIDE. [Suspect]
     Active Substance: LACOSAMIDE
     Indication: SEIZURE

REACTIONS (2)
  - Toxicity to various agents [Unknown]
  - Loss of consciousness [Recovering/Resolving]
